FAERS Safety Report 8334723-9 (Version None)
Quarter: 2012Q2

REPORT INFORMATION
  Report Type: 
  Country: None (occurrence: None)
  Receive Date: 20120503
  Receipt Date: 20120420
  Transmission Date: 20120825
  Serious: Yes (Other)
  Sender: FDA-Public Use
  Company Number: US-ROCHE-1035131

PATIENT
  Sex: Female
  Weight: 57.658 kg

DRUGS (5)
  1. ACCUTANE [Suspect]
     Indication: PRODUCT USED FOR UNKNOWN INDICATION
     Dates: start: 19960101, end: 19960501
  2. ACCUTANE [Suspect]
     Dates: start: 19991101, end: 20000301
  3. ACCUTANE [Suspect]
     Dates: start: 20031201, end: 20040301
  4. ACCUTANE [Suspect]
     Dates: start: 20050901, end: 20051001
  5. ACCUTANE [Suspect]
     Dates: start: 19980401, end: 19980701

REACTIONS (3)
  - CROHN'S DISEASE [None]
  - IRRITABLE BOWEL SYNDROME [None]
  - PANIC ATTACK [None]
